FAERS Safety Report 6566903-7 (Version None)
Quarter: 2010Q1

REPORT INFORMATION
  Report Type: 
  Country: None (occurrence: None)
  Receive Date: 20100202
  Receipt Date: 20100120
  Transmission Date: 20100710
  Serious: Yes (Other)
  Sender: FDA-Public Use
  Company Number: US-SANOFI-AVENTIS-2009SA008987

PATIENT
  Age: 67 Year
  Sex: Female
  Weight: 87.54 kg

DRUGS (16)
  1. LANTUS [Suspect]
     Indication: TYPE 2 DIABETES MELLITUS
     Dosage: DOSE:58 UNIT(S)
     Route: 058
     Dates: start: 20020101
  2. HUMALOG [Suspect]
     Indication: TYPE 2 DIABETES MELLITUS
     Dosage: WITH BREAKFAST AND DINNER DOSE:5 UNIT(S)
     Route: 058
     Dates: start: 20090901
  3. METOPROLOL [Concomitant]
  4. FEOSOL [Concomitant]
  5. GLIMEPIRIDE [Concomitant]
  6. GLIMEPIRIDE [Concomitant]
  7. ASPIRIN [Concomitant]
  8. VITAMIN B COMPLEX CAP [Concomitant]
  9. FOLIC ACID [Concomitant]
  10. NIACIN [Concomitant]
  11. LOVAZA [Concomitant]
  12. AMLODIPINE [Concomitant]
     Dosage: 2 1/2 MG (MYLAN)
  13. PLAVIX [Concomitant]
  14. ROSUVASTATIN [Concomitant]
  15. VITAMIN D [Concomitant]
     Dosage: DOSE:2000 UNIT(S)
  16. COENZA Q [Concomitant]

REACTIONS (4)
  - ANAEMIA [None]
  - BLOOD GLUCOSE INCREASED [None]
  - CORONARY ARTERY DISEASE [None]
  - HAEMOGLOBIN DECREASED [None]
